FAERS Safety Report 8188702-5 (Version None)
Quarter: 2012Q1

REPORT INFORMATION
  Report Type: 
  Country: None (occurrence: None)
  Receive Date: 20120306
  Receipt Date: 20120228
  Transmission Date: 20120608
  Serious: No
  Sender: FDA-Public Use
  Company Number: US-PFIZER INC-2012054218

PATIENT
  Sex: Female
  Weight: 54.422 kg

DRUGS (3)
  1. CELEBREX [Suspect]
     Indication: SACROILIITIS
  2. CELEBREX [Suspect]
     Indication: OSTEOARTHRITIS
     Dosage: 200 MG, DAILY
     Route: 048
     Dates: start: 20120227
  3. NAPROXEN (ALEVE) [Concomitant]
     Indication: MIGRAINE
     Dosage: 20 MG, UNK

REACTIONS (1)
  - HEADACHE [None]
